FAERS Safety Report 6506047-3 (Version None)
Quarter: 2009Q4

REPORT INFORMATION
  Report Type: 
  Country: None (occurrence: None)
  Receive Date: 20091217
  Receipt Date: 20091217
  Transmission Date: 20100525
  Serious: Yes (Disabling)
  Sender: FDA-Public Use
  Company Number: None

PATIENT
  Age: 25 Year
  Sex: Female
  Weight: 81.6475 kg

DRUGS (1)
  1. MIRENA [Suspect]
     Indication: CONTRACEPTION
     Dosage: INTRA-UTERINE
     Route: 015
     Dates: start: 20091124, end: 20091218

REACTIONS (8)
  - DEVICE DISLOCATION [None]
  - DIZZINESS [None]
  - MEDICAL DEVICE COMPLICATION [None]
  - MENORRHAGIA [None]
  - MUSCLE SPASMS [None]
  - NAUSEA [None]
  - PELVIC PAIN [None]
  - VAGINAL HAEMORRHAGE [None]
